FAERS Safety Report 5739322-0 (Version None)
Quarter: 2008Q2

REPORT INFORMATION
  Report Type: 
  Country: None (occurrence: None)
  Receive Date: 20080515
  Receipt Date: 20080505
  Transmission Date: 20081010
  Serious: Yes (Other)
  Sender: FDA-Public Use
  Company Number: HQWYE533326JUL05

PATIENT
  Sex: Female

DRUGS (8)
  1. PREMPRO [Suspect]
  2. MEDROXYPROGESTERONE ACETATE [Suspect]
  3. NORETHINDRONE [Suspect]
  4. MEDROXYPROGESTERONE [Suspect]
  5. NORETHINDRONE ACETATE [Suspect]
  6. MEDROXYPROGESTERONE ACETATE [Suspect]
  7. PREMARIN [Suspect]
  8. ESTRATEST [Suspect]

REACTIONS (1)
  - BREAST CANCER METASTATIC [None]
